FAERS Safety Report 5061939-X (Version None)
Quarter: 2006Q3

REPORT INFORMATION
  Report Type: 
  Country: None (occurrence: None)
  Receive Date: 20060726
  Receipt Date: 20060522
  Transmission Date: 20061208
  Serious: Yes (Other)
  Sender: FDA-Public Use
  Company Number: US-BRISTOL-MYERS SQUIBB COMPANY-13384870

PATIENT
  Age: 76 Year
  Sex: Female

DRUGS (7)
  1. METFORMIN HCL [Suspect]
     Indication: DIABETES MELLITUS
     Dates: start: 20060301
  2. NOVOLOG [Concomitant]
  3. CYMBALTA [Concomitant]
  4. LISINOPRIL [Concomitant]
  5. LOVASTATIN [Concomitant]
  6. EVISTA [Concomitant]
  7. VITAMINS [Concomitant]

REACTIONS (3)
  - BLOOD GLUCOSE DECREASED [None]
  - HYPOGLYCAEMIA [None]
  - SYNCOPE [None]
